FAERS Safety Report 7743319-9 (Version None)
Quarter: 2011Q3

REPORT INFORMATION
  Report Type: 
  Country: None (occurrence: None)
  Receive Date: 20110902
  Receipt Date: 20110822
  Transmission Date: 20111222
  Serious: Yes (Other)
  Sender: FDA-Public Use
  Company Number: B0743223A

PATIENT
  Sex: Male

DRUGS (4)
  1. LOPINAVIR AND RITONAVIR [Suspect]
     Indication: HIV INFECTION
  2. LAMIVUDINE [Suspect]
     Indication: HIV INFECTION
  3. ZIAGEN [Suspect]
     Indication: HIV INFECTION
  4. COTRIM [Concomitant]

REACTIONS (5)
  - IMMUNE RECONSTITUTION SYNDROME [None]
  - COUGH [None]
  - BRONCHIAL OBSTRUCTION [None]
  - DYSPNOEA [None]
  - PULMONARY TUBERCULOSIS [None]
